FAERS Safety Report 10286361 (Version 1)
Quarter: 2014Q3

REPORT INFORMATION
  Report Type: Spontaneous
  Country: HR (occurrence: None)
  Receive Date: 20140707
  Receipt Date: 20140707
  Transmission Date: 20150326
  Serious: Yes (Hospitalization, Other)
  Sender: FDA-Public Use
  Company Number: 2014/045

PATIENT
  Age: 26 Year
  Sex: Male

DRUGS (2)
  1. SERTRALIN (NO PREF. NAME) [Concomitant]
  2. VALPROIC ACID (NO PREF. NAME) [Suspect]
     Active Substance: VALPROIC ACID
     Indication: BIPOLAR DISORDER
     Dates: start: 2010, end: 201208

REACTIONS (6)
  - Toxicity to various agents [None]
  - Suicide attempt [None]
  - Mononeuropathy [None]
  - Drug level increased [None]
  - Mental status changes [None]
  - Muscular weakness [None]

NARRATIVE: CASE EVENT DATE: 201208
